FAERS Safety Report 6405860-0 (Version None)
Quarter: 2009Q4

REPORT INFORMATION
  Report Type: 
  Country: None (occurrence: None)
  Receive Date: 20091019
  Receipt Date: 20091012
  Transmission Date: 20100525
  Serious: Yes (Death, Life-Threatening, Hospitalization, Other)
  Sender: FDA-Public Use
  Company Number: DE-BRISTOL-MYERS SQUIBB COMPANY-14714315

PATIENT
  Age: 68 Year
  Sex: Female
  Weight: 53 kg

DRUGS (9)
  1. NACOM [Suspect]
     Indication: PREMEDICATION
     Route: 048
  2. CLOZAPINE [Suspect]
     Indication: PREMEDICATION
     Dosage: TAKEN UPTO 75MG PER DAY 0.5 TABS AT 7,9,12,14,19 O'CLOCK
     Route: 048
  3. DOMPERIDONE [Suspect]
     Indication: PREMEDICATION
     Route: 065
  4. OMEPRAZOLE [Suspect]
     Indication: PREMEDICATION
     Route: 065
  5. PIPAMPERONE [Suspect]
     Indication: PREMEDICATION
     Route: 065
  6. EXELON [Suspect]
     Indication: PREMEDICATION
     Dosage: TABS
     Route: 065
  7. STALEVO 100 [Suspect]
     Indication: PREMEDICATION
     Dosage: LEVODOPA 100/CARBIDOPA 25MG/ENTACAPON 200MG
     Route: 065
  8. VALPROIC ACID [Suspect]
     Indication: PREMEDICATION
     Route: 065
  9. DISTRANEURINE [Suspect]
     Indication: PREMEDICATION
     Route: 065

REACTIONS (3)
  - DEATH [None]
  - PANCREATITIS [None]
  - SUBILEUS [None]
